FAERS Safety Report 19213879 (Version 1)
Quarter: 2021Q2

REPORT INFORMATION
  Report Type: Spontaneous
  Country: US (occurrence: US)
  Receive Date: 20210505
  Receipt Date: 20210505
  Transmission Date: 20210717
  Serious: No
  Sender: FDA-Public Use
  Company Number: US-LUPIN PHARMACEUTICALS INC.-2021-05347

PATIENT
  Age: 31 Year
  Sex: Female

DRUGS (6)
  1. RIZATRIPTAN. [Concomitant]
     Active Substance: RIZATRIPTAN
     Indication: MIGRAINE
     Dosage: UNK
     Route: 065
  2. LEVONORGESTREL. [Concomitant]
     Active Substance: LEVONORGESTREL
     Indication: CONTRACEPTION
     Dosage: UNK, INTRAUTERINE DEVICE
     Route: 015
  3. LISINOPRIL. [Suspect]
     Active Substance: LISINOPRIL
     Indication: SECONDARY HYPERTENSION
     Dosage: 5 MILLIGRAM
     Route: 065
  4. NIFEDIPINE. [Concomitant]
     Active Substance: NIFEDIPINE
     Indication: SECONDARY HYPERTENSION
     Dosage: 30 MILLIGRAM, EXTENDED RELEASE 30MG
     Route: 065
  5. IBUPROFEN. [Concomitant]
     Active Substance: IBUPROFEN
     Indication: MIGRAINE
     Dosage: UNK, NEEDED APPROXIMATELY 2?3 TIMES PER YEAR
     Route: 065
  6. AMLODIPINE [Suspect]
     Active Substance: AMLODIPINE BESYLATE
     Indication: SECONDARY HYPERTENSION
     Dosage: 10 MILLIGRAM
     Route: 065

REACTIONS (1)
  - Orthostatic hypotension [Unknown]
